FAERS Safety Report 9520089 (Version 1)
Quarter: 2013Q3

REPORT INFORMATION
  Report Type: Spontaneous
  Country: FR (occurrence: FR)
  Receive Date: 20130912
  Receipt Date: 20130912
  Transmission Date: 20140515
  Serious: Yes (Hospitalization)
  Sender: FDA-Public Use
  Company Number: PHHY2013FR100982

PATIENT
  Age: 74 Year
  Sex: Male

DRUGS (3)
  1. ACLASTA [Suspect]
     Indication: OSTEOPOROSIS
     Dosage: 5 MG
     Route: 042
     Dates: start: 20120422
  2. MODOPAR [Concomitant]
     Dosage: 125
  3. DOLIPRANE [Concomitant]
     Dosage: UKN, PRN

REACTIONS (1)
  - Thrombocytopenia [Recovered/Resolved]
